FAERS Safety Report 6009083-9 (Version None)
Quarter: 2008Q4

REPORT INFORMATION
  Report Type: 
  Country: None (occurrence: None)
  Receive Date: 20081216
  Receipt Date: 20081204
  Transmission Date: 20090506
  Serious: Yes (Hospitalization)
  Sender: FDA-Public Use
  Company Number: 2008AL011576

PATIENT
  Age: 71 Year
  Sex: Female
  Weight: 90.7194 kg

DRUGS (20)
  1. DIGOXIN [Suspect]
     Indication: ATRIAL FIBRILLATION
     Dosage: 0.125MG, DAILY, PO
     Route: 048
     Dates: start: 20080403, end: 20080502
  2. DIGOXIN [Suspect]
     Indication: HEART RATE IRREGULAR
     Dosage: 0.125MG, DAILY, PO
     Route: 048
     Dates: start: 20080403, end: 20080502
  3. CYMBALTA [Concomitant]
  4. FERROUS SULFATE TAB [Concomitant]
  5. PROTONIX [Concomitant]
  6. ACTOS [Concomitant]
  7. SOTANOL [Concomitant]
  8. SIMVASTATIN [Concomitant]
  9. COUMADIN [Concomitant]
  10. ALDACTONE [Concomitant]
  11. GABAPENTIN [Concomitant]
  12. K-DUR [Concomitant]
  13. LISINOPRIL [Concomitant]
  14. GLUCOPHAGE [Concomitant]
  15. PREMARIN [Concomitant]
  16. CALCIUM [Concomitant]
  17. VITAMIN D [Concomitant]
  18. AMITRIPTYLINE [Concomitant]
  19. BUMEX [Concomitant]
  20. PERCOCET [Concomitant]

REACTIONS (5)
  - ASTHENIA [None]
  - BLOOD BLISTER [None]
  - DIZZINESS [None]
  - DYSSTASIA [None]
  - RENAL FAILURE [None]
